FAERS Safety Report 5712457-4 (Version None)
Quarter: 2008Q2

REPORT INFORMATION
  Report Type: 
  Country: None (occurrence: None)
  Receive Date: 20080422
  Receipt Date: 20080411
  Transmission Date: 20081010
  Serious: Yes (Other)
  Sender: FDA-Public Use
  Company Number: AT-BRISTOL-MYERS SQUIBB COMPANY-14157713

PATIENT
  Age: 22 Year
  Sex: Male

DRUGS (1)
  1. IFOSFAMIDE [Suspect]
     Dosage: 1 DOSAGE FORM=3G/M2.
     Route: 042
     Dates: start: 20071222, end: 20071224

REACTIONS (2)
  - BRADYPHRENIA [None]
  - DISORIENTATION [None]
